FAERS Safety Report 25031225 (Version 1)
Quarter: 2025Q1

REPORT INFORMATION
  Report Type: Spontaneous
  Country: US (occurrence: US)
  Receive Date: 20250303
  Receipt Date: 20250303
  Transmission Date: 20250409
  Serious: Yes (Other)
  Sender: PFIZER
  Company Number: US-PFIZER INC-PV202500024825

PATIENT
  Age: 48 Year
  Sex: Male

DRUGS (5)
  1. PIPERACILLIN SODIUM\TAZOBACTAM SODIUM [Suspect]
     Active Substance: PIPERACILLIN SODIUM\TAZOBACTAM SODIUM
     Indication: Pneumonia
  2. PIPERACILLIN SODIUM\TAZOBACTAM SODIUM [Suspect]
     Active Substance: PIPERACILLIN SODIUM\TAZOBACTAM SODIUM
     Indication: Sepsis
  3. VANCOMYCIN [Suspect]
     Active Substance: VANCOMYCIN
     Indication: Autoimmune haemolytic anaemia
  4. VANCOMYCIN [Suspect]
     Active Substance: VANCOMYCIN
     Indication: Pneumonia
  5. VANCOMYCIN [Suspect]
     Active Substance: VANCOMYCIN
     Indication: Sepsis

REACTIONS (1)
  - Autoimmune haemolytic anaemia [Recovered/Resolved]
